FAERS Safety Report 4263840-8 (Version None)
Quarter: 2004Q1

REPORT INFORMATION
  Report Type: 
  Country: None (occurrence: None)
  Receive Date: 20040102
  Receipt Date: 20031222
  Transmission Date: 20041129
  Serious: Yes (Hospitalization)
  Sender: FDA-Public Use
  Company Number: DE_031112325

PATIENT
  Age: 28 Year
  Sex: Male
  Weight: 79 kg

DRUGS (5)
  1. ZYPREXA [Suspect]
     Indication: SCHIZOAFFECTIVE DISORDER
     Dosage: 17.5 MG/DAY
     Dates: start: 20011217, end: 20031219
  2. QUILONUM- SLOW RELEASE (LITHIUM CARBONATE) [Concomitant]
  3. TEGRETAL - SLOW RELEASE (CARBAMAZEPINE) [Concomitant]
  4. SORTIS (ATORVASTATIN CALCIUM) [Concomitant]
  5. MARCUMAR [Concomitant]

REACTIONS (6)
  - BLOOD TRIGLYCERIDES INCREASED [None]
  - LABORATORY TEST ABNORMAL [None]
  - PNEUMONIA [None]
  - PULMONARY EMBOLISM [None]
  - PULMONARY INFARCTION [None]
  - THROMBOSIS [None]
